FAERS Safety Report 4869911-7 (Version None)
Quarter: 2005Q4

REPORT INFORMATION
  Report Type: 
  Country: None (occurrence: None)
  Receive Date: 20051230
  Receipt Date: 20051208
  Transmission Date: 20060501
  Serious: Yes (Hospitalization)
  Sender: FDA-Public Use
  Company Number: US-MERCK-0512USA01572

PATIENT
  Age: 68 Year
  Sex: Female
  Weight: 77 kg

DRUGS (13)
  1. VIOXX [Suspect]
     Indication: OSTEOARTHRITIS
     Route: 048
     Dates: start: 19990601, end: 20031001
  2. VIOXX [Suspect]
     Indication: EXOSTOSIS
     Route: 048
     Dates: start: 19990601, end: 20031001
  3. ZOCOR [Concomitant]
     Route: 065
  4. COZAAR [Concomitant]
     Route: 065
  5. ATENOLOL [Concomitant]
     Route: 065
  6. ASPIRIN [Concomitant]
     Route: 065
  7. LEVAQUIN [Concomitant]
     Route: 065
  8. ZESTRIL [Concomitant]
     Route: 065
  9. NITRO [Concomitant]
     Route: 065
  10. PLAVIX [Concomitant]
     Route: 065
  11. CHONDROITIN SULFATE SODIUM AND GLUCOSAMINE HYDROCHLORIDE AND MANGANESE [Concomitant]
     Route: 065
  12. AMOXICILLIN [Concomitant]
     Route: 065
  13. CIMETIDINE [Concomitant]
     Route: 065

REACTIONS (2)
  - ARTHROPATHY [None]
  - MYOCARDIAL INFARCTION [None]
